FAERS Safety Report 6596019-5 (Version None)
Quarter: 2010Q1

REPORT INFORMATION
  Report Type: 
  Country: None (occurrence: None)
  Receive Date: 20100223
  Receipt Date: 20100215
  Transmission Date: 20100710
  Serious: Yes (Hospitalization)
  Sender: FDA-Public Use
  Company Number: PHHO2010BE02602

PATIENT
  Sex: Male

DRUGS (6)
  1. NEORAL [Suspect]
     Indication: RENAL TRANSPLANT
     Dosage: 220 MG DAILY
     Route: 048
     Dates: start: 20090605, end: 20090717
  2. NO TREATMENT RECEIVED NOMED [Suspect]
     Indication: RENAL TRANSPLANT
     Dosage: NO TREATMENT
  3. MYFORTIC [Concomitant]
     Indication: RENAL TRANSPLANT
     Dosage: 1440 MG DAILY
     Route: 048
     Dates: start: 20090305, end: 20090717
  4. MYFORTIC [Concomitant]
     Dosage: 720 MG DAILY
     Route: 048
     Dates: start: 20090718
  5. MEDROL [Concomitant]
     Indication: RENAL TRANSPLANT
     Dosage: 4 MG DAILY
     Route: 048
     Dates: start: 20090513, end: 20090717
  6. MEDROL [Concomitant]
     Dosage: 8 MG DAILY
     Route: 048
     Dates: start: 20090718

REACTIONS (6)
  - CYTOMEGALOVIRUS INFECTION [None]
  - DYSPNOEA [None]
  - LEUKOPENIA [None]
  - LUNG INFILTRATION [None]
  - MALAISE [None]
  - PYREXIA [None]
